FAERS Safety Report 4372570-3 (Version None)
Quarter: 2004Q2

REPORT INFORMATION
  Report Type: 
  Country: None (occurrence: None)
  Receive Date: 20040526
  Receipt Date: 20040511
  Transmission Date: 20050107
  Serious: Yes (Hospitalization)
  Sender: FDA-Public Use
  Company Number: JP-JNJFOC-20040405441

PATIENT
  Age: 73 Year
  Sex: Male
  Weight: 76 kg

DRUGS (12)
  1. REMICADE [Suspect]
     Indication: RHEUMATOID ARTHRITIS
     Dosage: 3 MG/KG, 1 IN 1 AS NECESSARY, INTRAVENOUS DRIP
     Route: 041
     Dates: start: 20040224, end: 20040224
  2. REMICADE [Suspect]
     Indication: RHEUMATOID ARTHRITIS
     Dosage: 3 MG/KG, 1 IN 1 AS NECESSARY, INTRAVENOUS DRIP
     Route: 041
     Dates: start: 20040311, end: 20040311
  3. RHEUMATREX [Suspect]
     Indication: RHEUMATOID ARTHRITIS
     Dosage: 6 MG, IN 1 WEEK, ORAL
     Route: 048
     Dates: start: 20040219, end: 20040408
  4. PREDNISOLONE [Suspect]
     Indication: RHEUMATOID ARTHRITIS
     Dosage: 5 MG, IN 1 DAY,ORAL
     Route: 048
     Dates: start: 20040212, end: 20040226
  5. MOBIC (MELOXICAM) CAPSULES [Suspect]
     Indication: RHEUMATOID ARTHRITIS
     Dosage: 10 MG, IN 1 DAY, ORAL
     Route: 048
     Dates: start: 20040224, end: 20040408
  6. METHOTREXATE [Concomitant]
  7. METHYCOBAL (MECOBALAMIN) TABLETS [Concomitant]
  8. SELBEX (TEPRENONE) TABLETS [Concomitant]
  9. ROCALTROL (CALCITRIOL) TABLETS [Concomitant]
  10. MEVALOTIN (PRAVASTATIN SODIUM) TABLETS [Concomitant]
  11. RENDORMIN (ALL OTHER THERAPEUTIC PRODUCTS) TABLETS [Concomitant]
  12. LANSOPRAZOLE [Concomitant]

REACTIONS (14)
  - ANOREXIA [None]
  - CARDIAC FAILURE [None]
  - CONDITION AGGRAVATED [None]
  - CYTOMEGALOVIRUS INFECTION [None]
  - DRUG INTERACTION [None]
  - INFECTION IN AN IMMUNOCOMPROMISED HOST [None]
  - INTERSTITIAL LUNG DISEASE [None]
  - OPPORTUNISTIC INFECTION [None]
  - PNEUMOCYSTIS CARINII INFECTION [None]
  - PNEUMOCYSTIS CARINII PNEUMONIA [None]
  - PNEUMONIA BACTERIAL [None]
  - REFLUX OESOPHAGITIS [None]
  - RESPIRATORY DISTRESS [None]
  - VOMITING [None]
